FAERS Safety Report 8971204 (Version 1)
Quarter: 2012Q4

REPORT INFORMATION
  Report Type: 
  Country: US (occurrence: US)
  Receive Date: 20121217
  Receipt Date: 20121217
  Transmission Date: 20130627
  Serious: Yes (Other)
  Sender: FDA-Public Use
  Company Number: US-GLAXOSMITHKLINE-A1005091A

PATIENT
  Age: 19 Year
  Sex: Female

DRUGS (3)
  1. POTIGA [Suspect]
     Indication: CONVULSION
     Dosage: 200MG Three times per day
     Route: 048
     Dates: start: 201210
  2. ZONEGRAN [Concomitant]
  3. DILANTIN [Concomitant]

REACTIONS (2)
  - Convulsion [Unknown]
  - Mood altered [Unknown]
